FAERS Safety Report 15465663 (Version 1)
Quarter: 2018Q4

REPORT INFORMATION
  Report Type: Report from Study
  Country: BR (occurrence: BR)
  Receive Date: 20181004
  Receipt Date: 20181004
  Transmission Date: 20190204
  Serious: Yes (Other)
  Sender: FDA-Public Use
  Company Number: PHHY2018BR074513

PATIENT
  Sex: Female

DRUGS (1)
  1. EXELON PATCH [Suspect]
     Active Substance: RIVASTIGMINE
     Indication: PRODUCT USED FOR UNKNOWN INDICATION
     Route: 062

REACTIONS (7)
  - Atrophy [Unknown]
  - Anal incontinence [Unknown]
  - Urinary incontinence [Unknown]
  - Dementia Alzheimer^s type [Not Recovered/Not Resolved]
  - Head discomfort [Unknown]
  - Gait disturbance [Unknown]
  - Drug ineffective [Unknown]
